FAERS Safety Report 22097687 (Version 2)
Quarter: 2023Q1

REPORT INFORMATION
  Report Type: Spontaneous
  Country: US (occurrence: US)
  Receive Date: 20230315
  Receipt Date: 20230330
  Transmission Date: 20230418
  Serious: Yes (Death, Hospitalization, Other)
  Sender: FDA-Public Use
  Company Number: US-PFIZER INC-PV202300046635

PATIENT
  Age: 71 Year
  Sex: Female

DRUGS (3)
  1. PAXLOVID [Interacting]
     Active Substance: NIRMATRELVIR\RITONAVIR
     Indication: COVID-19
     Dosage: UNK
  2. VERAPAMIL HCL [Interacting]
     Active Substance: VERAPAMIL HYDROCHLORIDE
     Dosage: UNK
  3. NADOLOL [Concomitant]
     Active Substance: NADOLOL
     Dosage: UNK

REACTIONS (3)
  - Cardiogenic shock [Fatal]
  - Drug interaction [Fatal]
  - Bradycardia [Unknown]
